FAERS Safety Report 9651261 (Version 4)
Quarter: 2013Q4

REPORT INFORMATION
  Report Type: Report from Study
  Country: RU (occurrence: RU)
  Receive Date: 20131029
  Receipt Date: 20131219
  Transmission Date: 20140711
  Serious: Yes (Other)
  Sender: FDA-Public Use
  Company Number: RU-MERCK-2012SP032070

PATIENT
  Age: 19 Year
  Sex: Male
  Weight: 81.7 kg

DRUGS (4)
  1. PLACEBO [Suspect]
     Indication: CHRONIC HEPATITIS C
     Dosage: UNK
     Route: 048
     Dates: start: 20120511
  2. PEGINTRON [Suspect]
     Indication: CHRONIC HEPATITIS C
     Dosage: 120MCG, 0.5ML PER WEEK
     Route: 058
     Dates: start: 20120409, end: 20120805
  3. PEGINTRON [Suspect]
     Dosage: 120MCG, 0.35ML PER WEEK
     Route: 058
     Dates: start: 20120806
  4. RIBAVIRIN [Suspect]
     Indication: CHRONIC HEPATITIS C
     Dosage: 600 MG, BID
     Route: 048
     Dates: start: 20120409

REACTIONS (1)
  - Neutropenia [Recovered/Resolved with Sequelae]
